FAERS Safety Report 9410896 (Version 2)
Quarter: 2014Q1

REPORT INFORMATION
  Report Type: Spontaneous
  Country: US (occurrence: US)
  Receive Date: 20130719
  Receipt Date: 20140115
  Transmission Date: 20141002
  Serious: Yes (Hospitalization)
  Sender: FDA-Public Use
  Company Number: US-B.I. PHARMACEUTICALS,INC./RIDGEFIELD-2013-BI-21127BP

PATIENT
  Age: 86 Year
  Sex: Female
  Weight: 62.6 kg

DRUGS (15)
  1. PRADAXA [Suspect]
     Indication: ATRIAL FIBRILLATION
     Dosage: 300 MG
     Dates: start: 20110211, end: 20110505
  2. GLIMEPIRIDE [Concomitant]
     Indication: TYPE 2 DIABETES MELLITUS
     Dosage: 4 MG
     Dates: start: 1999
  3. VYTORIN [Concomitant]
     Indication: HYPERLIPIDAEMIA
     Dates: start: 2000
  4. SYNTHROID [Concomitant]
     Indication: HYPOTHYROIDISM
     Dosage: 112 MCG
     Dates: start: 2004
  5. TEMAZEPAM [Concomitant]
     Indication: INSOMNIA
     Dosage: 15 MG
     Dates: start: 20110127, end: 20110717
  6. PAXIL CR [Concomitant]
     Indication: DEPRESSION
     Dosage: 12.5 MG
  7. PAXIL CR [Concomitant]
     Indication: ANXIETY
  8. NORCO [Concomitant]
  9. NIASPAN ER [Concomitant]
     Dosage: 500 MG
  10. ASPIRIN [Concomitant]
     Indication: MYOCARDIAL ISCHAEMIA
     Dosage: 81 MG
     Dates: start: 2004
  11. FUROSEMIDE [Concomitant]
     Dosage: 40 MG
  12. MECLIZINE [Concomitant]
     Dosage: 75 ML
     Dates: start: 20110208, end: 20110505
  13. NIZATIDINE [Concomitant]
     Dosage: 150 MG
     Dates: start: 20110115, end: 20110603
  14. K-DUR [Concomitant]
     Dosage: 10 MEQ
     Dates: start: 2000
  15. LORAZEPAM [Concomitant]
     Dosage: 19.5 MG
     Dates: start: 20110215, end: 20110919

REACTIONS (3)
  - Anaemia [Unknown]
  - Gastrointestinal haemorrhage [Unknown]
  - Coagulopathy [Unknown]
